FAERS Safety Report 8385547-8 (Version None)
Quarter: 2012Q2

REPORT INFORMATION
  Report Type: 
  Country: None (occurrence: None)
  Receive Date: 20120525
  Receipt Date: 20111122
  Transmission Date: 20120825
  Serious: No
  Sender: FDA-Public Use
  Company Number: US-BIOGENIDEC-2011BI044614

PATIENT

DRUGS (1)
  1. AVONEX [Suspect]
     Indication: MULTIPLE SCLEROSIS
     Route: 030
     Dates: start: 20090618

REACTIONS (4)
  - LATEX ALLERGY [None]
  - MENOPAUSAL DISORDER [None]
  - MULTIPLE SCLEROSIS [None]
  - HORMONE LEVEL ABNORMAL [None]
